FAERS Safety Report 6072110-7 (Version None)
Quarter: 2009Q1

REPORT INFORMATION
  Report Type: 
  Country: None (occurrence: None)
  Receive Date: 20090205
  Receipt Date: 20090205
  Transmission Date: 20090719
  Serious: Yes (Hospitalization)
  Sender: FDA-Public Use
  Company Number: None

PATIENT
  Age: 87 Year
  Sex: Female

DRUGS (7)
  1. ISOVUE-300 [Suspect]
     Indication: COMPUTERISED TOMOGRAM
     Dosage: 100ML ONE TIME IV BOLUS
     Route: 040
     Dates: start: 20090106, end: 20090106
  2. PLAVIX [Concomitant]
  3. VYTORIN [Concomitant]
  4. LEXAPRO [Concomitant]
  5. FUROSEMIDE [Concomitant]
  6. BYSTOLIC [Concomitant]
  7. ISOSORBIDE DINITRATE [Concomitant]

REACTIONS (9)
  - ANAPHYLACTIC REACTION [None]
  - ANXIETY [None]
  - ATRIAL FIBRILLATION [None]
  - DYSPNOEA [None]
  - ERYTHEMA [None]
  - FEELING JITTERY [None]
  - HEADACHE [None]
  - NAUSEA [None]
  - OXYGEN SATURATION DECREASED [None]
